FAERS Safety Report 22614788 (Version 2)
Quarter: 2023Q2

REPORT INFORMATION
  Report Type: Spontaneous
  Country: CN (occurrence: CN)
  Receive Date: 20230619
  Receipt Date: 20230623
  Transmission Date: 20230721
  Serious: Yes (Hospitalization, Other)
  Sender: FDA-Public Use
  Company Number: None

PATIENT
  Age: 35 Year
  Sex: Female

DRUGS (1)
  1. IBUPROFEN [Suspect]
     Active Substance: IBUPROFEN
     Indication: Product used for unknown indication
     Dosage: 48 DOSAGE FORM, TOTAL, TOOK 48 IBUPROFEN SUSTAINED- RELEASE CAPSULES (300 MG/CAPSULE) AT 1 TIME
     Route: 048

REACTIONS (17)
  - Helicobacter infection [Recovered/Resolved]
  - Duodenitis [Recovered/Resolved]
  - Liver function test abnormal [Recovered/Resolved]
  - Drug abuse [Unknown]
  - Hypertension [Recovered/Resolved]
  - Gastric ulcer [Recovered/Resolved]
  - Chronic gastritis [Recovered/Resolved]
  - Paraesthesia [Recovered/Resolved]
  - Hyperphagia [Recovered/Resolved]
  - Fatigue [Recovered/Resolved]
  - Dyspepsia [Recovered/Resolved]
  - Nausea [Recovered/Resolved]
  - Retching [Recovered/Resolved]
  - Dizziness [Recovered/Resolved]
  - Abdominal pain upper [Recovered/Resolved]
  - Renal impairment [Recovered/Resolved]
  - Intentional overdose [Unknown]
